FAERS Safety Report 25831033 (Version 1)
Quarter: 2025Q3

REPORT INFORMATION
  Report Type: Spontaneous
  Country: UA (occurrence: UA)
  Receive Date: 20250922
  Receipt Date: 20250922
  Transmission Date: 20251021
  Serious: Yes (Death)
  Sender: MYLAN
  Company Number: UA-MYLANLABS-2025M1079810

PATIENT
  Age: 59 Year
  Sex: Male

DRUGS (4)
  1. PRETOMANID [Suspect]
     Active Substance: PRETOMANID
     Indication: Tuberculosis
     Dosage: 200 MILLIGRAM, QD (1/1 DAY(S))
     Dates: start: 20250619, end: 20250724
  2. LINEZOLID [Suspect]
     Active Substance: LINEZOLID
     Indication: Tuberculosis
     Dosage: 600 MILLIGRAM, QD (1/1 DAY(S))
     Dates: start: 20250619, end: 20250724
  3. BEDAQUILINE [Suspect]
     Active Substance: BEDAQUILINE
     Indication: Tuberculosis
     Dosage: 200 MILLIGRAM, 3XW (3/1 WEEKS, 1 TABLET CONTAINS 120.89 MG OF BEDAQUILINE FUMARATE)
     Dates: start: 20250619, end: 20250724
  4. MOXIFLOXACIN [Suspect]
     Active Substance: MOXIFLOXACIN
     Indication: Tuberculosis
     Dosage: 400 MILLIGRAM, QD (1/1 DAYS, 1 TABLET CONTAINS: MOXIFLOXACIN HYDROCHLORIDE 436.330 MG)
     Dates: start: 20250619, end: 20250724

REACTIONS (1)
  - Death [Fatal]

NARRATIVE: CASE EVENT DATE: 20250724
